FAERS Safety Report 5603407-X (Version None)
Quarter: 2008Q1

REPORT INFORMATION
  Report Type: 
  Country: None (occurrence: None)
  Receive Date: 20080122
  Receipt Date: 20080115
  Transmission Date: 20080703
  Serious: Yes (Death)
  Sender: FDA-Public Use
  Company Number: 2008-170587-NL

PATIENT
  Age: 41 Year
  Sex: Female

DRUGS (16)
  1. VECURONIUM BROMIDE [Suspect]
     Dosage: 8 MG ONCE INTRAVENOUS (NOS)
     Route: 042
     Dates: start: 20070605
  2. EXCELASE [Concomitant]
  3. CEFOTIAM HEXETIL HYDROCHLORIDE [Concomitant]
  4. SODIUM CHLORIDE INJ [Concomitant]
  5. ISOTONIC SALINE SOLUTION KIT-H [Concomitant]
  6. FLUNITRAZEPAM [Concomitant]
  7. GLUCOSE [Concomitant]
  8. OXYTOCIN [Concomitant]
  9. GLYCERINE ENEMA ^MUNE^ 60 [Concomitant]
  10. LIDOCAINE HYDROCHLORIDE [Concomitant]
  11. POVIDONE IODINE [Concomitant]
  12. ROPIVACAINE [Concomitant]
  13. PROPOFOL [Concomitant]
  14. OXYGEN [Concomitant]
  15. VEEN-F [Concomitant]
  16. SULPERAZON [Concomitant]

REACTIONS (6)
  - BLOOD PRESSURE INCREASED [None]
  - CARDIAC MASSAGE [None]
  - DRUG EXPOSURE DURING PREGNANCY [None]
  - HEART RATE INCREASED [None]
  - INTRA-UTERINE DEATH [None]
  - PROCEDURAL VOMITING [None]
